FAERS Safety Report 20639525 (Version 1)
Quarter: 2022Q1

REPORT INFORMATION
  Report Type: Spontaneous
  Country: US (occurrence: US)
  Receive Date: 20220326
  Receipt Date: 20220326
  Transmission Date: 20220423
  Serious: No
  Sender: FDA-Public Use
  Company Number: US-SA-SAC20220316000347

PATIENT
  Age: 47 Year
  Sex: Female

DRUGS (8)
  1. AUBAGIO [Suspect]
     Active Substance: TERIFLUNOMIDE
     Indication: Multiple sclerosis
     Dosage: 14 MG, QD
     Route: 048
     Dates: start: 202106
  2. HYDROCHLOROTHIAZIDE [Concomitant]
     Active Substance: HYDROCHLOROTHIAZIDE
     Dosage: UNK
  3. TREXIMET [Concomitant]
     Active Substance: NAPROXEN SODIUM\SUMATRIPTAN SUCCINATE
     Dosage: UNK
  4. ROPINIROLE [Concomitant]
     Active Substance: ROPINIROLE
     Dosage: UNK
  5. NORVASC [Concomitant]
     Active Substance: AMLODIPINE BESYLATE
     Dosage: UNK
  6. CLONAZEPAM [Concomitant]
     Active Substance: CLONAZEPAM
     Dosage: UNK
  7. CELECOXIB [Concomitant]
     Active Substance: CELECOXIB
     Dosage: UNK
  8. BISOPROLOL FUMARATE [Concomitant]
     Active Substance: BISOPROLOL FUMARATE
     Dosage: UNK

REACTIONS (5)
  - COVID-19 [Unknown]
  - Nausea [Unknown]
  - Diarrhoea [Unknown]
  - Alopecia [Unknown]
  - Oral surgery [Unknown]

NARRATIVE: CASE EVENT DATE: 20211101
